FAERS Safety Report 12011599 (Version 2)
Quarter: 2016Q1

REPORT INFORMATION
  Report Type: Spontaneous
  Country: US (occurrence: US)
  Receive Date: 20160205
  Receipt Date: 20160217
  Transmission Date: 20160526
  Serious: No
  Sender: FDA-Public Use
  Company Number: US-GLAXOSMITHKLINE-US2016012037

PATIENT
  Age: 60 Year
  Sex: Female

DRUGS (5)
  1. ARNUITY ELLIPTA [Suspect]
     Active Substance: FLUTICASONE FUROATE
  2. ACCOLATE [Concomitant]
     Active Substance: ZAFIRLUKAST
  3. FLOVENT [Suspect]
     Active Substance: FLUTICASONE PROPIONATE
     Indication: PRODUCT USED FOR UNKNOWN INDICATION
     Dosage: 2 PUFF(S), BID
     Route: 055
     Dates: end: 20160120
  4. ALBUTEROL. [Concomitant]
     Active Substance: ALBUTEROL
     Dosage: UNK UNK, PRN
  5. OXYCODONE [Concomitant]
     Active Substance: OXYCODONE

REACTIONS (3)
  - Wheezing [Not Recovered/Not Resolved]
  - Drug ineffective [Unknown]
  - Arthritis [Not Recovered/Not Resolved]

NARRATIVE: CASE EVENT DATE: 201308
